FAERS Safety Report 4956016-X (Version None)
Quarter: 2006Q1

REPORT INFORMATION
  Report Type: 
  Country: None (occurrence: None)
  Receive Date: 20060328
  Receipt Date: 20050112
  Transmission Date: 20060701
  Serious: Yes (Hospitalization)
  Sender: FDA-Public Use
  Company Number: US-MERCK-0501USA01825

PATIENT
  Age: 57 Year
  Sex: Male
  Weight: 70 kg

DRUGS (2)
  1. VIOXX [Suspect]
     Indication: PAIN
     Route: 048
     Dates: start: 19940101, end: 20020101
  2. VIOXX [Suspect]
     Indication: MUSCLE STRAIN
     Route: 048
     Dates: start: 19940101, end: 20020101

REACTIONS (1)
  - CEREBROVASCULAR ACCIDENT [None]
